FAERS Safety Report 9249224 (Version 6)
Quarter: 2016Q3

REPORT INFORMATION
  Report Type: Spontaneous
  Country: US (occurrence: US)
  Receive Date: 20130423
  Receipt Date: 20160915
  Transmission Date: 20161109
  Serious: Yes (Hospitalization, Disabling, Other)
  Sender: FDA-Public Use
  Company Number: US-009507513-1304USA011000

PATIENT
  Sex: Male

DRUGS (1)
  1. PROPECIA [Suspect]
     Active Substance: FINASTERIDE
     Indication: ANDROGENETIC ALOPECIA
     Dosage: 1 MG, QD
     Route: 048
     Dates: start: 200301, end: 20080315

REACTIONS (21)
  - Anxiety [Not Recovered/Not Resolved]
  - Penis injury [Not Recovered/Not Resolved]
  - Ejaculation disorder [Not Recovered/Not Resolved]
  - Erectile dysfunction [Not Recovered/Not Resolved]
  - Depression [Not Recovered/Not Resolved]
  - Tibia fracture [Unknown]
  - Cognitive disorder [Not Recovered/Not Resolved]
  - Gynaecomastia [Not Recovered/Not Resolved]
  - Sexual dysfunction [Not Recovered/Not Resolved]
  - Dermatitis [Unknown]
  - Acrochordon [Unknown]
  - Hormone level abnormal [Not Recovered/Not Resolved]
  - Genital disorder male [Not Recovered/Not Resolved]
  - Genital hypoaesthesia [Not Recovered/Not Resolved]
  - Ankle fracture [Unknown]
  - Head injury [Not Recovered/Not Resolved]
  - Brain injury [Not Recovered/Not Resolved]
  - Rectal haemorrhage [Unknown]
  - Shoulder operation [Unknown]
  - Semen volume decreased [Not Recovered/Not Resolved]
  - Loss of libido [Not Recovered/Not Resolved]

NARRATIVE: CASE EVENT DATE: 2003
